FAERS Safety Report 8196417-2 (Version None)
Quarter: 2012Q1

REPORT INFORMATION
  Report Type: 
  Country: None (occurrence: None)
  Receive Date: 20120229
  Receipt Date: 20110602
  Transmission Date: 20120608
  Serious: No
  Sender: FDA-Public Use
  Company Number: US-2011-10302

PATIENT
  Age: 47 Year
  Sex: Female

DRUGS (10)
  1. SAMSCA [Suspect]
     Indication: HYPONATRAEMIA
     Dosage: 15 MG MILLIGRAM(S), DAILY DOSE, ORAL 30 MG MILLIGRAM(S), DAILY DOSE, ORAL
     Route: 048
     Dates: start: 20110421, end: 20110502
  2. SAMSCA [Suspect]
     Indication: HYPONATRAEMIA
     Dosage: 15 MG MILLIGRAM(S), DAILY DOSE, ORAL 30 MG MILLIGRAM(S), DAILY DOSE, ORAL
     Route: 048
     Dates: start: 20110503
  3. CHLORTHALIDONE [Concomitant]
  4. MIRALAX [Concomitant]
  5. ALDACTONE (POTASSIUM CANRENOATE) [Concomitant]
  6. MULTIVITAMIN [Concomitant]
  7. ZYRTEC [Concomitant]
  8. SINGULAIR [Concomitant]
  9. DEMEX (PROPYPHENAZONE) [Concomitant]
  10. CLARITIN [Concomitant]

REACTIONS (3)
  - ABDOMINAL DISTENSION [None]
  - HAIR TEXTURE ABNORMAL [None]
  - FAECES DISCOLOURED [None]
